FAERS Safety Report 18974289 (Version 1)
Quarter: 2021Q1

REPORT INFORMATION
  Report Type: Report from Study
  Country: DE (occurrence: DE)
  Receive Date: 20210305
  Receipt Date: 20210305
  Transmission Date: 20210420
  Serious: Yes (Other)
  Sender: FDA-Public Use
  Company Number: DE-IGSA-GTI003893

PATIENT
  Sex: Female
  Weight: 60 kg

DRUGS (1)
  1. PROLASTIN [Suspect]
     Active Substance: .ALPHA.1-PROTEINASE INHIBITOR HUMAN
     Indication: ALPHA-1 ANTITRYPSIN DEFICIENCY
     Dosage: 4000 MG, Q.WK.
     Route: 042
     Dates: start: 1995

REACTIONS (2)
  - Loss of consciousness [Recovered/Resolved]
  - Chest pain [Recovering/Resolving]
